FAERS Safety Report 10331010 (Version 1)
Quarter: 2014Q3

REPORT INFORMATION
  Report Type: Report from Study
  Country: US (occurrence: US)
  Receive Date: 20140722
  Receipt Date: 20140722
  Transmission Date: 20150326
  Serious: Yes (Hospitalization)
  Sender: FDA-Public Use
  Company Number: US-EISAI INC-E2007-01802-CLI-US

PATIENT
  Age: 23 Year
  Sex: Male

DRUGS (5)
  1. E2007 (PERAMPANEL) [Suspect]
     Active Substance: PERAMPANEL
     Indication: GENERALISED TONIC-CLONIC SEIZURE
     Dosage: CORE STUDY-DOUBLE BLIND
     Route: 048
  2. E2007 (PERAMPANEL) [Suspect]
     Active Substance: PERAMPANEL
     Dosage: OPEN-LABEL EXTENSION
     Route: 048
     Dates: start: 20140714
  3. E2007 (PERAMPANEL) [Suspect]
     Active Substance: PERAMPANEL
     Dosage: OPEN-LABEL EXTENSION
     Route: 048
     Dates: end: 20140707
  4. E2007 (PERAMPANEL) [Suspect]
     Active Substance: PERAMPANEL
     Dosage: OPEN-LABEL EXTENSION
     Route: 048
     Dates: start: 20140708, end: 20140713
  5. E2007 (PERAMPANEL) [Suspect]
     Active Substance: PERAMPANEL
     Dosage: EXTENSION PHASE-DOUBLE-BLIND
     Route: 048

REACTIONS (1)
  - Hallucination, visual [Not Recovered/Not Resolved]

NARRATIVE: CASE EVENT DATE: 20140423
